FAERS Safety Report 6400541-1 (Version None)
Quarter: 2009Q4

REPORT INFORMATION
  Report Type: 
  Country: None (occurrence: None)
  Receive Date: 20091014
  Receipt Date: 20090930
  Transmission Date: 20100525
  Serious: Yes (Death, Other)
  Sender: FDA-Public Use
  Company Number: NZ-MYLANLABS-2009S1017168

PATIENT
  Age: 73 Year
  Sex: Male

DRUGS (4)
  1. BUTACORT [Suspect]
     Indication: DRUG USE FOR UNKNOWN INDICATION
     Route: 055
     Dates: end: 20081101
  2. FELODIPINE [Suspect]
     Indication: HYPERTENSION
     Route: 048
     Dates: end: 20081101
  3. VALPROATE SODIUM [Suspect]
     Indication: HYPERTENSION
     Route: 048
     Dates: end: 20081101
  4. ZOPICLONE [Suspect]
     Indication: EPILEPSY
     Route: 048
     Dates: end: 20080101

REACTIONS (1)
  - LUNG INFILTRATION [None]
